FAERS Safety Report 14373157 (Version 1)
Quarter: 2018Q1

REPORT INFORMATION
  Report Type: Spontaneous
  Country: US (occurrence: US)
  Receive Date: 20180109
  Receipt Date: 20180109
  Transmission Date: 20180509
  Serious: No
  Sender: FDA-Public Use
  Company Number: None

PATIENT
  Age: 52 Year
  Sex: Female

DRUGS (1)
  1. GENOTROPIN [Suspect]
     Active Substance: SOMATROPIN

REACTIONS (5)
  - Feeling cold [None]
  - Lack of injection site rotation [None]
  - Nausea [None]
  - Skin indentation [None]
  - Pyrexia [None]

NARRATIVE: CASE EVENT DATE: 20171209
